FAERS Safety Report 5959450-4 (Version None)
Quarter: 2008Q4

REPORT INFORMATION
  Report Type: 
  Country: None (occurrence: None)
  Receive Date: 20081119
  Receipt Date: 20081119
  Transmission Date: 20090506
  Serious: Yes (Death)
  Sender: FDA-Public Use
  Company Number: None

PATIENT
  Age: 19 Year
  Sex: Female
  Weight: 65 kg

DRUGS (4)
  1. TYLENOL (CAPLET) [Suspect]
     Dosage: ONCE PO
     Route: 048
     Dates: start: 20080309
  2. ZOLOFT [Concomitant]
  3. ALLEGRA [Concomitant]
  4. AMBIEN [Concomitant]

REACTIONS (14)
  - ALANINE AMINOTRANSFERASE INCREASED [None]
  - ASPARTATE AMINOTRANSFERASE INCREASED [None]
  - BLOOD BILIRUBIN INCREASED [None]
  - BRAIN DEATH [None]
  - BRAIN HERNIATION [None]
  - BRAIN OEDEMA [None]
  - HALLUCINATIONS, MIXED [None]
  - INTRACRANIAL PRESSURE INCREASED [None]
  - MENTAL STATUS CHANGES [None]
  - NAUSEA [None]
  - NEUROLOGICAL DECOMPENSATION [None]
  - OVERDOSE [None]
  - URINE OUTPUT DECREASED [None]
  - VOMITING [None]
